FAERS Safety Report 9701746 (Version 1)
Quarter: 2013Q4

REPORT INFORMATION
  Report Type: Spontaneous
  Country: DK (occurrence: DK)
  Receive Date: 20131121
  Receipt Date: 20131121
  Transmission Date: 20140711
  Serious: Yes (Other)
  Sender: FDA-Public Use
  Company Number: DK-ACTAVIS-2013-21289

PATIENT
  Age: 36 Year
  Sex: Male
  Weight: 73 kg

DRUGS (2)
  1. TRAMADOL ACTAVIS [Suspect]
     Indication: PAIN
     Dosage: UNK
     Route: 065
     Dates: start: 20130917, end: 20131004
  2. CIPRALEX [Interacting]
     Indication: DEPRESSION
     Dosage: 20 MG, DAILY
     Route: 048
     Dates: end: 20131004

REACTIONS (8)
  - Serotonin syndrome [Recovered/Resolved]
  - Altered state of consciousness [Unknown]
  - Muscle spasticity [Unknown]
  - Malaise [Unknown]
  - Dizziness [Unknown]
  - Hyperhidrosis [Unknown]
  - Diarrhoea [Unknown]
  - Drug interaction [Recovered/Resolved]
